FAERS Safety Report 10024208 (Version 1)
Quarter: 2014Q1

REPORT INFORMATION
  Report Type: Spontaneous
  Country: US (occurrence: US)
  Receive Date: 20140320
  Receipt Date: 20140320
  Transmission Date: 20141002
  Serious: No
  Sender: FDA-Public Use
  Company Number: US-PFIZER INC-2014078307

PATIENT
  Age: 39 Year
  Sex: Female

DRUGS (2)
  1. GENOTROPIN [Suspect]
     Dosage: 0.8 MG, 1X/DAY
     Route: 058
     Dates: start: 20110404
  2. GENOTROPIN [Suspect]
     Dosage: 0.8 MG, 1X/DAY
     Dates: start: 20140213

REACTIONS (1)
  - Myalgia [Unknown]
